FAERS Safety Report 20744681 (Version 1)
Quarter: 2022Q2

REPORT INFORMATION
  Report Type: Spontaneous
  Country: DE (occurrence: DE)
  Receive Date: 20220425
  Receipt Date: 20220425
  Transmission Date: 20220721
  Serious: Yes (Hospitalization, Other)
  Sender: FDA-Public Use
  Company Number: DE-TEVA-416243GER

PATIENT
  Age: 48 Year
  Sex: Male

DRUGS (12)
  1. ZOPICLONE [Suspect]
     Active Substance: ZOPICLONE
     Indication: Product used for unknown indication
     Dosage: 7.5 MILLIGRAM, QD,7.5 MILLIGRAM DAILY;
     Route: 065
     Dates: start: 2004
  2. ZOPICLONE [Suspect]
     Active Substance: ZOPICLONE
     Dosage: 15 MILLIGRAM, QD,15 MILLIGRAM DAILY
     Route: 065
     Dates: start: 2004, end: 201110
  3. VERAPAMIL [Suspect]
     Active Substance: VERAPAMIL HYDROCHLORIDE
     Indication: Product used for unknown indication
     Dosage: UNK
     Route: 065
  4. DIAZEPAM [Suspect]
     Active Substance: DIAZEPAM
     Indication: Product used for unknown indication
     Dosage: UNK,DROPS(FOR ORAL USE)
     Route: 048
     Dates: end: 201301
  5. DIAZEPAM [Suspect]
     Active Substance: DIAZEPAM
     Dosage: 20 GTT DAILY,DROPS(FOR ORAL USE)
     Route: 048
     Dates: start: 201110
  6. ZOPICLONE [Suspect]
     Active Substance: ZOPICLONE
     Indication: Product used for unknown indication
     Dosage: 1 DOSAGE FORMS DAILY; 0-0-2
     Route: 048
  7. ZOPICLONE [Suspect]
     Active Substance: ZOPICLONE
     Indication: Sleep disorder
     Dosage: 1 DOSAGE FORM, QD,1 DOSAGE FORMS DAILY; 0-0-1.5
     Route: 048
  8. ZOPICLONE [Suspect]
     Active Substance: ZOPICLONE
     Dosage: 1 DOSAGE FORMS DAILY; 0-0-1
     Route: 048
     Dates: start: 2003
  9. BISOPROLOL [Concomitant]
     Active Substance: BISOPROLOL
     Dosage: 10 MILLIGRAM
  10. MIRTAZAPINE [Concomitant]
     Active Substance: MIRTAZAPINE
     Indication: Depression
     Dosage: UNK
  11. PANTOPRAZOLE SODIUM [Concomitant]
     Active Substance: PANTOPRAZOLE SODIUM
     Dosage: 20 MILLIGRAM
     Dates: start: 201301
  12. MESALAMINE [Concomitant]
     Active Substance: MESALAMINE
     Dosage: 2 GRAM

REACTIONS (20)
  - Crohn^s disease [Recovering/Resolving]
  - Insomnia [Recovering/Resolving]
  - Thyroid size decreased [Unknown]
  - Depressive symptom [Recovering/Resolving]
  - Nasopharyngitis [Recovering/Resolving]
  - Sleep disorder [Recovering/Resolving]
  - Personality change [Recovering/Resolving]
  - Tinnitus [Recovering/Resolving]
  - Irritability [Recovering/Resolving]
  - Drug dependence [Unknown]
  - Feeling abnormal [Recovering/Resolving]
  - Muscle twitching [Recovering/Resolving]
  - Tachycardia [Recovering/Resolving]
  - Aggression [Recovering/Resolving]
  - Hyperacusis [Recovering/Resolving]
  - Fatigue [Recovering/Resolving]
  - Deafness [Recovering/Resolving]
  - Photosensitivity reaction [Recovering/Resolving]
  - Withdrawal syndrome [Recovering/Resolving]
  - Off label use [Unknown]

NARRATIVE: CASE EVENT DATE: 20130101
